FAERS Safety Report 7624339-1 (Version None)
Quarter: 2011Q3

REPORT INFORMATION
  Report Type: 
  Country: None (occurrence: None)
  Receive Date: 20110720
  Receipt Date: 20110620
  Transmission Date: 20111222
  Serious: No
  Sender: FDA-Public Use
  Company Number: US-PFIZER INC-2011136074

PATIENT
  Sex: Male

DRUGS (1)
  1. DRISTAN [Suspect]
     Dosage: UNK

REACTIONS (1)
  - DRUG EFFECT DECREASED [None]
